FAERS Safety Report 6580200-5 (Version None)
Quarter: 2010Q1

REPORT INFORMATION
  Report Type: 
  Country: None (occurrence: None)
  Receive Date: 20100203
  Receipt Date: 20100120
  Transmission Date: 20100710
  Serious: Yes (Death)
  Sender: FDA-Public Use
  Company Number: 2010SP005962

PATIENT
  Age: 74 Year
  Sex: Male
  Weight: 59 kg

DRUGS (4)
  1. REMERON [Suspect]
     Indication: DEPRESSION
     Dosage: 30 MG; QD; PO
     Route: 048
     Dates: start: 20091009, end: 20100101
  2. OMEPRAL [Concomitant]
  3. MUCOSTA [Concomitant]
  4. BONALON [Concomitant]

REACTIONS (1)
  - COMPLETED SUICIDE [None]
